FAERS Safety Report 7803189-7 (Version None)
Quarter: 2011Q4

REPORT INFORMATION
  Report Type: 
  Country: None (occurrence: None)
  Receive Date: 20111007
  Receipt Date: 20110929
  Transmission Date: 20120403
  Serious: Yes (Hospitalization)
  Sender: FDA-Public Use
  Company Number: FR-ELI_LILLY_AND_COMPANY-FR201105003798

PATIENT
  Sex: Male
  Weight: 107.3 kg

DRUGS (6)
  1. SABRIL [Concomitant]
     Indication: EPILEPSY
     Route: 048
  2. PHENOBARBITAL TAB [Concomitant]
     Indication: EPILEPSY
     Dosage: UNK
     Route: 048
  3. OLANZAPINE [Suspect]
     Indication: SCHIZOPHRENIA
     Dosage: 405 MG, UNK
     Route: 030
     Dates: start: 20100601
  4. DEPAKENE [Concomitant]
     Dosage: 2 G, QD
     Dates: start: 20110501
  5. DEPAKENE [Concomitant]
     Indication: EPILEPSY
     Route: 048
  6. DEPAKENE [Concomitant]
     Dosage: LOADING DOSE
     Route: 042

REACTIONS (7)
  - GENERALISED NON-CONVULSIVE EPILEPSY [None]
  - CONFUSIONAL STATE [None]
  - LOSS OF CONSCIOUSNESS [None]
  - HYPERTENSION [None]
  - DISTURBANCE IN ATTENTION [None]
  - SEDATION [None]
  - TACHYCARDIA [None]
